FAERS Safety Report 12855230 (Version 1)
Quarter: 2016Q4

REPORT INFORMATION
  Report Type: Report from Study
  Country: None (occurrence: US)
  Receive Date: 20161017
  Receipt Date: 20161017
  Transmission Date: 20170207
  Serious: Yes (Other)
  Sender: FDA-Public Use
  Company Number: US-ABBVIE-16P-163-1755387-00

PATIENT
  Age: 51 Year
  Sex: Female

DRUGS (4)
  1. VIEKIRA PAK [Suspect]
     Active Substance: DASABUVIR\OMBITASVIR\PARITAPREVIR\RITONAVIR
     Indication: HEPATITIS C
     Route: 048
     Dates: start: 20160714, end: 20160912
  2. VIEKIRA PAK [Suspect]
     Active Substance: DASABUVIR\OMBITASVIR\PARITAPREVIR\RITONAVIR
     Route: 048
     Dates: start: 20160914
  3. RIBAVIRIN. [Concomitant]
     Active Substance: RIBAVIRIN
     Indication: HEPATITIS C
     Dosage: 600 MILLIGRAMS IN THE MORNING AND 400 MILLIGRAMS IN THE EVENING.
     Route: 048
     Dates: start: 20160714, end: 20160912
  4. RIBAVIRIN. [Concomitant]
     Active Substance: RIBAVIRIN
     Dosage: 600 MILLIGRAMS IN THE MORNING AND 400 MILLIGRAMS IN THE EVENING.
     Route: 048
     Dates: start: 20160914

REACTIONS (3)
  - Colonic fistula [Unknown]
  - Drug dose omission [Unknown]
  - Fistula discharge [Unknown]

NARRATIVE: CASE EVENT DATE: 20160912
